FAERS Safety Report 8355831-2 (Version None)
Quarter: 2012Q2

REPORT INFORMATION
  Report Type: 
  Country: None (occurrence: None)
  Receive Date: 20120514
  Receipt Date: 20120503
  Transmission Date: 20120825
  Serious: Yes (Death, Life-Threatening, Hospitalization)
  Sender: FDA-Public Use
  Company Number: US-BRISTOL-MYERS SQUIBB COMPANY-15055452

PATIENT
  Age: 67 Year
  Sex: Female
  Weight: 121 kg

DRUGS (11)
  1. DARVOCET-N 50 [Suspect]
     Indication: BACK PAIN
  2. PRILOSEC [Concomitant]
  3. LASIX [Concomitant]
  4. GLIPIZIDE [Concomitant]
  5. CARBOPLATIN [Suspect]
     Indication: NON-SMALL CELL LUNG CANCER STAGE IIIB
     Dosage: 6DF=6AUC.DRUG DISCONTINUED ON 05APR2010
     Route: 042
     Dates: start: 20100324, end: 20100324
  6. MORPHINE SULFATE [Suspect]
     Indication: BACK PAIN
  7. LEVOXYL [Concomitant]
  8. NOVOLIN 70/30 [Concomitant]
  9. PACLITAXEL [Suspect]
     Indication: NON-SMALL CELL LUNG CANCER STAGE IIIB
     Dosage: DRUG DISCONTINUED ON 05APR2010
     Route: 042
     Dates: start: 20100324, end: 20100324
  10. ATENOLOL [Concomitant]
  11. SIMVASTATIN [Concomitant]

REACTIONS (4)
  - CARDIO-RESPIRATORY ARREST [None]
  - ACCIDENTAL OVERDOSE [None]
  - CONFUSIONAL STATE [None]
  - CARDIAC ARREST [None]
